FAERS Safety Report 8522499-1 (Version None)
Quarter: 2012Q3

REPORT INFORMATION
  Report Type: 
  Country: None (occurrence: None)
  Receive Date: 20120719
  Receipt Date: 20120712
  Transmission Date: 20120928
  Serious: Yes (Hospitalization, Disabling, Other)
  Sender: FDA-Public Use
  Company Number: US-009507513-1103USA00412

PATIENT

DRUGS (12)
  1. ACTONEL [Suspect]
     Indication: OSTEOPENIA
  2. FOSAMAX [Suspect]
     Indication: OSTEOPOROSIS
     Dosage: 70 MG, QW
     Route: 048
     Dates: start: 20050522, end: 20060116
  3. FOSAMAX [Suspect]
     Indication: OSTEOPENIA
  4. BONIVA [Suspect]
     Indication: OSTEOPOROSIS
     Dosage: 150 MG, QM
     Route: 048
     Dates: start: 20070101, end: 20080101
  5. FOSAMAX [Suspect]
  6. HORMONES (UNSPECIFIED) [Concomitant]
     Indication: HORMONE REPLACEMENT THERAPY
  7. FOSAMAX [Suspect]
     Dosage: 70 MG, QW
     Route: 048
     Dates: start: 20090513
  8. BONIVA [Suspect]
     Indication: OSTEOPENIA
  9. CYMBALTA [Concomitant]
     Indication: DEPRESSION
     Dates: start: 20030101
  10. ACTONEL [Suspect]
     Indication: OSTEOPOROSIS
     Dosage: 35 MG, QW
     Route: 048
     Dates: start: 20030506
  11. FOSAMAX PLUS D [Suspect]
     Indication: OSTEOPOROSIS
     Dosage: UNK UNK, QW
     Route: 048
     Dates: start: 20060116
  12. FOSAMAX PLUS D [Suspect]
     Indication: OSTEOPENIA

REACTIONS (29)
  - PERIPHERAL VASCULAR DISORDER [None]
  - VERTIGO [None]
  - OSTEONECROSIS OF JAW [None]
  - TOOTH LOSS [None]
  - TOOTH FRACTURE [None]
  - VOMITING [None]
  - PAIN IN EXTREMITY [None]
  - TENOSYNOVITIS [None]
  - INFECTION [None]
  - SYNOVIAL CYST [None]
  - MUSCULOSKELETAL PAIN [None]
  - BLOOD CHOLESTEROL INCREASED [None]
  - OTITIS EXTERNA [None]
  - HYPERTENSION [None]
  - BONE LOSS [None]
  - EPICONDYLITIS [None]
  - NAUSEA [None]
  - OESOPHAGITIS [None]
  - DENTAL CARIES [None]
  - ATROPHY [None]
  - BRONCHITIS [None]
  - ARTERIOSCLEROSIS CORONARY ARTERY [None]
  - OTITIS MEDIA [None]
  - ACUTE MYOCARDIAL INFARCTION [None]
  - OSTEOARTHRITIS [None]
  - MUSCLE INJURY [None]
  - FALL [None]
  - DIZZINESS [None]
  - CONTUSION [None]
